FAERS Safety Report 19266681 (Version 3)
Quarter: 2021Q2

REPORT INFORMATION
  Report Type: Spontaneous
  Country: US (occurrence: US)
  Receive Date: 20210517
  Receipt Date: 20210617
  Transmission Date: 20210717
  Serious: No
  Sender: FDA-Public Use
  Company Number: US-ASCEND THERAPEUTICS US, LLC-2110615

PATIENT
  Age: 82 Year
  Sex: Female
  Weight: 79.3 kg

DRUGS (8)
  1. HYDROCHLOROTHIAZIDE. [Concomitant]
     Active Substance: HYDROCHLOROTHIAZIDE
     Route: 065
  2. ESTROGEL [Suspect]
     Active Substance: ESTRADIOL
     Indication: VULVOVAGINAL DRYNESS
     Route: 061
     Dates: start: 20210419, end: 20210419
  3. ESTROGEL [Suspect]
     Active Substance: ESTRADIOL
     Route: 061
     Dates: start: 20210419, end: 20210419
  4. ESTROGEL [Suspect]
     Active Substance: ESTRADIOL
  5. TRIAMCINOLONE(TRIAMCINOLONE),UNK [Concomitant]
     Route: 065
  6. PREDNISONE. [Concomitant]
     Active Substance: PREDNISONE
     Route: 065
  7. ATORVASTATIN CALCIUM. [Concomitant]
     Active Substance: ATORVASTATIN CALCIUM
     Route: 065
  8. TOPROL XL [Concomitant]
     Active Substance: METOPROLOL SUCCINATE
     Route: 065

REACTIONS (2)
  - Vulvovaginal burning sensation [Recovered/Resolved]
  - Off label use [None]

NARRATIVE: CASE EVENT DATE: 20210419
